FAERS Safety Report 9476389 (Version 1)
Quarter: 2013Q3

REPORT INFORMATION
  Report Type: Spontaneous
  Country: US (occurrence: None)
  Receive Date: 20130823
  Receipt Date: 20130823
  Transmission Date: 20140515
  Serious: Yes (Life-Threatening)
  Sender: FDA-Public Use
  Company Number: None

PATIENT
  Age: 86 Year
  Sex: Female
  Weight: 65.4 kg

DRUGS (1)
  1. RITUXAN [Suspect]
     Indication: PARAPROTEINAEMIA
     Route: 042
     Dates: start: 20130822, end: 20130822

REACTIONS (4)
  - Vomiting [None]
  - Nasopharyngitis [None]
  - Chills [None]
  - Blood pressure systolic decreased [None]
